FAERS Safety Report 17033667 (Version 2)
Quarter: 2019Q4

REPORT INFORMATION
  Report Type: Spontaneous
  Country: BR (occurrence: BR)
  Receive Date: 20191114
  Receipt Date: 20191119
  Transmission Date: 20200122
  Serious: Yes (Other)
  Sender: FDA-Public Use
  Company Number: BR-ELI_LILLY_AND_COMPANY-BR201911003196

PATIENT
  Sex: Female

DRUGS (1)
  1. TALTZ [Suspect]
     Active Substance: IXEKIZUMAB
     Indication: PSORIASIS
     Dosage: UNK UNK, UNKNOWN
     Route: 065
     Dates: start: 20191025

REACTIONS (6)
  - Injection site cellulitis [Unknown]
  - Pyrexia [Unknown]
  - Pain [Unknown]
  - Fatigue [Unknown]
  - Injection site irritation [Unknown]
  - Injection site inflammation [Unknown]

NARRATIVE: CASE EVENT DATE: 20191031
